FAERS Safety Report 21037622 (Version 4)
Quarter: 2022Q3

REPORT INFORMATION
  Report Type: Spontaneous
  Country: JP (occurrence: JP)
  Receive Date: 20220704
  Receipt Date: 20220809
  Transmission Date: 20221026
  Serious: Yes (Death)
  Sender: FDA-Public Use
  Company Number: JP-ORGANON-O2206JPN000497J

PATIENT
  Age: 3 Decade
  Sex: Female
  Weight: 54.8 kg

DRUGS (2)
  1. REMERON [Suspect]
     Active Substance: MIRTAZAPINE
     Indication: Depression
     Dosage: UNK UNK, UNKNOWN
     Route: 048
  2. CAFFEINE [Suspect]
     Active Substance: CAFFEINE
     Dosage: 100 MILLIGRAM
     Route: 048

REACTIONS (2)
  - Toxicity to various agents [Fatal]
  - Drug interaction [Unknown]
